FAERS Safety Report 24269317 (Version 1)
Quarter: 2024Q3

REPORT INFORMATION
  Report Type: Report from Study
  Country: US (occurrence: US)
  Receive Date: 20240830
  Receipt Date: 20240830
  Transmission Date: 20241017
  Serious: Yes (Other)
  Sender: XERIS PHARMACEUTICALS
  Company Number: US-BRIAN CONNER SVP QUALITY AND CHIEF COMPLIANCE OFFICER-2024XER00375

PATIENT
  Age: 67 Year
  Sex: Male
  Weight: 86.168 kg

DRUGS (5)
  1. KEVEYIS [Suspect]
     Active Substance: DICHLORPHENAMIDE
     Indication: Myotonia
     Dosage: 1 TABLET (50 MG), 2X/DAY
     Route: 048
     Dates: start: 20240711, end: 202408
  2. LISINOPRIL [Concomitant]
     Active Substance: LISINOPRIL
  3. DILTIAZEM [Concomitant]
     Active Substance: DILTIAZEM
  4. FENOFIBRATE [Concomitant]
     Active Substance: FENOFIBRATE
  5. EZETIMIBE [Concomitant]
     Active Substance: EZETIMIBE

REACTIONS (15)
  - Neuropathy peripheral [Not Recovered/Not Resolved]
  - Myotonia [Not Recovered/Not Resolved]
  - Musculoskeletal stiffness [Not Recovered/Not Resolved]
  - Formication [Recovering/Resolving]
  - Brain fog [Recovering/Resolving]
  - Thirst [Not Recovered/Not Resolved]
  - Dyspepsia [Recovering/Resolving]
  - Pain [Not Recovered/Not Resolved]
  - Dizziness postural [Recovering/Resolving]
  - Dysgeusia [Not Recovered/Not Resolved]
  - Paraesthesia [Recovering/Resolving]
  - Dizziness [Recovering/Resolving]
  - Diarrhoea [Recovering/Resolving]
  - Pruritus [Not Recovered/Not Resolved]
  - Off label use [Not Recovered/Not Resolved]

NARRATIVE: CASE EVENT DATE: 20240701
